FAERS Safety Report 8582009-X (Version None)
Quarter: 2012Q3

REPORT INFORMATION
  Report Type: 
  Country: None (occurrence: None)
  Receive Date: 20120809
  Receipt Date: 20120724
  Transmission Date: 20120928
  Serious: No
  Sender: FDA-Public Use
  Company Number: US-ASTRAZENECA-2012SE52308

PATIENT
  Age: 61 Year
  Sex: Female
  Weight: 49.9 kg

DRUGS (8)
  1. LISINOPRIL [Concomitant]
     Indication: HYPERTENSION
  2. AMLODIPINE [Concomitant]
     Indication: HYPERTENSION
  3. NEXIUM [Suspect]
     Indication: DYSPEPSIA
     Route: 048
     Dates: start: 20120201, end: 20120201
  4. ASPIRIN [Concomitant]
     Indication: THROMBOSIS
  5. LORATADINE [Concomitant]
  6. LEVOTHYROXINE SODIUM [Concomitant]
  7. ZOLPIDEM [Concomitant]
     Indication: SLEEP DISORDER
  8. NEXIUM [Suspect]
     Route: 048

REACTIONS (2)
  - DRUG INEFFECTIVE [None]
  - OFF LABEL USE [None]
